FAERS Safety Report 5953125-3 (Version None)
Quarter: 2008Q4

REPORT INFORMATION
  Report Type: 
  Country: None (occurrence: None)
  Receive Date: 20081114
  Receipt Date: 20081110
  Transmission Date: 20090506
  Serious: Yes (Other)
  Sender: FDA-Public Use
  Company Number: CA-ASTRAZENECA-2008UW25183

PATIENT
  Age: 60 Year
  Sex: Male

DRUGS (1)
  1. ENTOCORT EC [Suspect]
     Indication: RECTAL FISSURE
     Route: 054
     Dates: start: 20070501, end: 20070701

REACTIONS (10)
  - CONSTIPATION [None]
  - DIARRHOEA [None]
  - GROIN PAIN [None]
  - IMPAIRED HEALING [None]
  - MUSCULOSKELETAL PAIN [None]
  - PAIN [None]
  - PROCTALGIA [None]
  - PRURITUS [None]
  - PSEUDOMONAS INFECTION [None]
  - RENAL NEOPLASM [None]
